FAERS Safety Report 23579851 (Version 1)
Quarter: 2024Q1

REPORT INFORMATION
  Report Type: Spontaneous
  Country: DE (occurrence: DE)
  Receive Date: 20240229
  Receipt Date: 20240229
  Transmission Date: 20240410
  Serious: Yes (Hospitalization, Other)
  Sender: FDA-Public Use
  Company Number: DE-OTSUKA-2023_032608

PATIENT
  Age: 37 Year
  Sex: Female

DRUGS (28)
  1. ARIPIPRAZOLE [Suspect]
     Active Substance: ARIPIPRAZOLE
     Indication: Schizoaffective disorder
     Dosage: 10 MG, QD
     Route: 048
     Dates: start: 20230825, end: 20230830
  2. ARIPIPRAZOLE [Suspect]
     Active Substance: ARIPIPRAZOLE
     Dosage: 15 MG, QD
     Route: 048
     Dates: start: 20230831
  3. ARIPIPRAZOLE [Suspect]
     Active Substance: ARIPIPRAZOLE
     Dosage: 15 MG
     Route: 065
     Dates: start: 202309
  4. ARIPIPRAZOLE [Suspect]
     Active Substance: ARIPIPRAZOLE
     Dosage: 5 MG, QD
     Route: 048
     Dates: start: 20230821, end: 20230824
  5. QUETIAPINE [Suspect]
     Active Substance: QUETIAPINE
     Dosage: 150 MG
     Route: 065
     Dates: start: 201909
  6. QUETIAPINE [Suspect]
     Active Substance: QUETIAPINE
     Dosage: 200 MG
     Route: 065
     Dates: start: 202305
  7. QUETIAPINE [Suspect]
     Active Substance: QUETIAPINE
     Dosage: 200 MG
     Route: 065
     Dates: start: 202309
  8. QUETIAPINE [Suspect]
     Active Substance: QUETIAPINE
     Dosage: 225 MG
     Route: 065
     Dates: start: 201909
  9. QUETIAPINE [Suspect]
     Active Substance: QUETIAPINE
     Dosage: 300 MG
     Route: 065
     Dates: start: 201507
  10. QUETIAPINE [Suspect]
     Active Substance: QUETIAPINE
     Dosage: 300 MG
     Route: 065
     Dates: start: 202007
  11. QUETIAPINE [Suspect]
     Active Substance: QUETIAPINE
     Dosage: 300 MG
     Route: 065
     Dates: start: 202305
  12. QUETIAPINE [Suspect]
     Active Substance: QUETIAPINE
     Indication: Product used for unknown indication
     Dosage: 400 MG, QD
     Route: 048
     Dates: start: 2014, end: 2015
  13. QUETIAPINE [Suspect]
     Active Substance: QUETIAPINE
     Dosage: 400 MG
     Route: 065
     Dates: start: 201909
  14. QUETIAPINE [Suspect]
     Active Substance: QUETIAPINE
     Dosage: 400 MG
     Route: 065
     Dates: start: 202309
  15. QUETIAPINE [Suspect]
     Active Substance: QUETIAPINE
     Dosage: 450 MG
     Route: 065
     Dates: start: 202007
  16. QUETIAPINE [Suspect]
     Active Substance: QUETIAPINE
     Dosage: 500 MG
     Route: 065
     Dates: start: 202012
  17. QUETIAPINE [Suspect]
     Active Substance: QUETIAPINE
     Dosage: 600 MG, QD
     Route: 048
     Dates: start: 2015
  18. QUETIAPINE [Suspect]
     Active Substance: QUETIAPINE
     Dosage: 75 MG
     Route: 065
     Dates: start: 202007
  19. QUETIAPINE [Suspect]
     Active Substance: QUETIAPINE
     Dosage: 750 MG
     Route: 065
     Dates: start: 201507
  20. BUPROPION [Concomitant]
     Active Substance: BUPROPION
     Indication: Product used for unknown indication
     Dosage: 25 MG
     Route: 065
     Dates: start: 202309
  21. DARIDOREXANT [Concomitant]
     Active Substance: DARIDOREXANT
     Indication: Product used for unknown indication
     Route: 065
  22. DARIDOREXANT [Concomitant]
     Active Substance: DARIDOREXANT
     Indication: Product used for unknown indication
     Route: 065
  23. METFORMIN [Concomitant]
     Active Substance: METFORMIN HYDROCHLORIDE
     Indication: Product used for unknown indication
     Dosage: 1000 MG, QD
     Route: 048
     Dates: start: 202305
  24. METFORMIN [Concomitant]
     Active Substance: METFORMIN HYDROCHLORIDE
     Dosage: 1000 MG
     Route: 065
     Dates: start: 202309
  25. RAMIPRIL [Concomitant]
     Active Substance: RAMIPRIL
     Indication: Product used for unknown indication
     Dosage: 2.5 MG, QD
     Route: 048
     Dates: start: 202305
  26. RAMIPRIL [Concomitant]
     Active Substance: RAMIPRIL
     Dosage: 2.5 MG
     Route: 065
     Dates: start: 202309
  27. SERTRALINE [Concomitant]
     Active Substance: SERTRALINE HYDROCHLORIDE
     Indication: Product used for unknown indication
     Dosage: 1.25 MG
     Route: 065
     Dates: start: 202012
  28. SERTRALINE [Concomitant]
     Active Substance: SERTRALINE HYDROCHLORIDE
     Dosage: 1.25 MG
     Route: 065
     Dates: start: 201909

REACTIONS (3)
  - Schizoaffective disorder [Unknown]
  - Galactorrhoea [Unknown]
  - Product use in unapproved indication [Unknown]

NARRATIVE: CASE EVENT DATE: 20230821
